FAERS Safety Report 16421171 (Version 7)
Quarter: 2020Q3

REPORT INFORMATION
  Report Type: Spontaneous
  Country: CA (occurrence: CA)
  Receive Date: 20190612
  Receipt Date: 20200902
  Transmission Date: 20201102
  Serious: Yes (Hospitalization)
  Sender: FDA-Public Use
  Company Number: CA-BIOMARINAP-CA-2019-124049

PATIENT
  Age: 10 Year
  Sex: Female
  Weight: 15.7 kg

DRUGS (6)
  1. LYRICA [Concomitant]
     Active Substance: PREGABALIN
     Indication: PRODUCT USED FOR UNKNOWN INDICATION
     Dosage: UNK
     Dates: end: 20190606
  2. MELATONIN [Concomitant]
     Active Substance: MELATONIN
     Indication: SLEEP DISORDER
     Dosage: UNK, QD
     Route: 065
  3. BENADRYL [Concomitant]
     Active Substance: DIPHENHYDRAMINE HYDROCHLORIDE
     Indication: PREMEDICATION
     Dosage: 12.5 MILLIGRAM, SINGLE
     Route: 048
  4. ACETAMINOPHEN. [Concomitant]
     Active Substance: ACETAMINOPHEN
     Indication: PREMEDICATION
     Dosage: 225 MILLIGRAM, SINGLE
     Route: 048
  5. VIMIZIM [Suspect]
     Active Substance: ELOSULFASE ALFA
     Indication: MUCOPOLYSACCHARIDOSIS IV
     Dosage: 2 MILLIGRAM/KILOGRAM, QW
     Route: 042
     Dates: start: 20150126
  6. ZOFRAN [Concomitant]
     Active Substance: ONDANSETRON HYDROCHLORIDE
     Indication: PREMEDICATION
     Dosage: 2 MILLIGRAM, SINGLE
     Route: 048

REACTIONS (5)
  - Oedema peripheral [Not Recovered/Not Resolved]
  - Medical device site erythema [Not Recovered/Not Resolved]
  - Limb operation [Unknown]
  - Medical device site discharge [Not Recovered/Not Resolved]
  - Pain in extremity [Recovering/Resolving]

NARRATIVE: CASE EVENT DATE: 20190603
